FAERS Safety Report 6544437-3 (Version None)
Quarter: 2010Q1

REPORT INFORMATION
  Report Type: 
  Country: None (occurrence: None)
  Receive Date: 20100120
  Receipt Date: 20100120
  Transmission Date: 20100710
  Serious: Yes (Life-Threatening, Other)
  Sender: FDA-Public Use
  Company Number: None

PATIENT
  Age: 21 Year
  Sex: Female
  Weight: 63.5036 kg

DRUGS (1)
  1. ORTHO MICRONOR BIRTH CONTROL [Suspect]

REACTIONS (12)
  - ASTHENIA [None]
  - BLINDNESS [None]
  - CONCUSSION [None]
  - DIZZINESS [None]
  - DYSARTHRIA [None]
  - FALL [None]
  - GASTRIC DISORDER [None]
  - HEAD INJURY [None]
  - HEADACHE [None]
  - LOSS OF CONSCIOUSNESS [None]
  - THROMBOSIS [None]
  - VISUAL IMPAIRMENT [None]
